FAERS Safety Report 19818582 (Version 2)
Quarter: 2022Q1

REPORT INFORMATION
  Report Type: Spontaneous
  Country: US (occurrence: None)
  Receive Date: 20210912
  Receipt Date: 20220101
  Transmission Date: 20220423
  Serious: No
  Sender: FDA-Public Use
  Company Number: 2021A694987

PATIENT
  Age: 29393 Day
  Sex: Female
  Weight: 68 kg

DRUGS (2)
  1. FASENRA [Suspect]
     Active Substance: BENRALIZUMAB
     Indication: Asthma
     Dosage: ONCE EVERY 4 WEEKS FOR THE FIRST 2 INJECTIONS AND EVERY 8 WEEKS THEREAFTER30.0MG/ML UNKNOWN
     Route: 058
     Dates: start: 20210607
  2. FASENRA [Concomitant]
     Active Substance: BENRALIZUMAB
     Indication: Asthma
     Route: 058
     Dates: start: 20210621

REACTIONS (6)
  - Asthma [Recovered/Resolved]
  - Stress [Unknown]
  - Arthropod sting [Recovering/Resolving]
  - Device leakage [Unknown]
  - Incorrect dose administered by device [Unknown]
  - Inappropriate schedule of product administration [Unknown]

NARRATIVE: CASE EVENT DATE: 20210813
